FAERS Safety Report 9784650 (Version 1)
Quarter: 2013Q4

REPORT INFORMATION
  Report Type: Spontaneous
  Country: US (occurrence: US)
  Receive Date: 20131226
  Receipt Date: 20131226
  Transmission Date: 20140711
  Serious: Yes (Hospitalization)
  Sender: FDA-Public Use
  Company Number: US-SA-2013SA134072

PATIENT
  Age: 51 Year
  Sex: Female
  Weight: 57 kg

DRUGS (1)
  1. HECTOROL [Suspect]
     Indication: RENAL FAILURE CHRONIC
     Dosage: 4 MCG IN 2 MINUTES; IV PULSE
     Route: 042
     Dates: start: 20131217

REACTIONS (2)
  - Hypoaesthesia [Unknown]
  - Bone pain [Unknown]
